FAERS Safety Report 4392004-2 (Version None)
Quarter: 2004Q3

REPORT INFORMATION
  Report Type: 
  Country: None (occurrence: None)
  Receive Date: 20040701
  Receipt Date: 20040616
  Transmission Date: 20050211
  Serious: Yes (Hospitalization)
  Sender: FDA-Public Use
  Company Number: USA040670248

PATIENT
  Age: 77 Year
  Sex: Female

DRUGS (4)
  1. HUMULIN-HUMAN INSULIN (RDNA) :30% REGULAR, 70% NPH (H [Suspect]
  2. HUMALOG [Suspect]
     Dates: start: 20030701
  3. LANTUS [Concomitant]
  4. NOVOLIN N [Concomitant]

REACTIONS (6)
  - BLOOD GLUCOSE INCREASED [None]
  - DIABETES MELLITUS INADEQUATE CONTROL [None]
  - DIABETES MELLITUS INSULIN-DEPENDENT [None]
  - MALAISE [None]
  - PHARMACEUTICAL PRODUCT COMPLAINT [None]
  - PNEUMONIA [None]
